FAERS Safety Report 8088256-8 (Version None)
Quarter: 2012Q1

REPORT INFORMATION
  Report Type: 
  Country: None (occurrence: None)
  Receive Date: 20120128
  Receipt Date: 20110412
  Transmission Date: 20120608
  Serious: No
  Sender: FDA-Public Use
  Company Number: US-ABBOTT-11P-163-0718393-00

PATIENT
  Age: 53 Year
  Sex: Female

DRUGS (3)
  1. TRANDOLAPRIL [Concomitant]
     Indication: HYPERTENSION
     Route: 048
     Dates: start: 20060101
  2. HUMIRA [Suspect]
     Indication: PSORIASIS
     Dates: start: 20081001
  3. LIPITOR [Concomitant]
     Indication: BLOOD CHOLESTEROL INCREASED
     Dosage: 1/2 TABLET, TWICE DAILY
     Route: 048
     Dates: start: 20080101

REACTIONS (2)
  - DIARRHOEA [None]
  - HYPERTENSION [None]
